FAERS Safety Report 8441647 (Version 2)
Quarter: 2012Q4

REPORT INFORMATION
  Report Type: 
  Country: US (occurrence: US)
  Receive Date: 20120305
  Receipt Date: 20121019
  Transmission Date: 20130627
  Serious: Yes (Hospitalization)
  Sender: FDA-Public Use
  Company Number: PHEH2012US004567

PATIENT
  Age: 80 Year

DRUGS (3)
  1. ZOMETA [Suspect]
     Indication: MULTIPLE MYELOMA
  2. VELCADE [Suspect]
     Indication: MULTIPLE MYELOMA
  3. DECADRON [Suspect]
     Indication: MULTIPLE MYELOMA

REACTIONS (11)
  - Acute myocardial infarction [Unknown]
  - Chest pain [Unknown]
  - Systolic dysfunction [Unknown]
  - Hypercholesterolaemia [Unknown]
  - Pulmonary oedema [Unknown]
  - Dyspnoea [Unknown]
  - Urinary tract infection [Unknown]
  - Adrenal mass [Unknown]
  - Haemorrhage [Unknown]
  - Nausea [Unknown]
  - Vomiting [Unknown]
